FAERS Safety Report 18064025 (Version 1)
Quarter: 2020Q3

REPORT INFORMATION
  Report Type: Spontaneous
  Country: US (occurrence: US)
  Receive Date: 20200724
  Receipt Date: 20200724
  Transmission Date: 20201103
  Serious: Yes (Other)
  Sender: FDA-Public Use
  Company Number: US-KAMADA LIMITED-2020US002233

PATIENT

DRUGS (15)
  1. GLASSIA [Suspect]
     Active Substance: .ALPHA.1-PROTEINASE INHIBITOR HUMAN
     Indication: ALPHA-1 ANTITRYPSIN DEFICIENCY
     Dosage: 125 MG/KG, Q2WEEKS (QOW; EVERY OTHER WEEK) (1100 MG)
     Route: 042
     Dates: start: 20150720
  2. AZELASTINE. [Concomitant]
     Active Substance: AZELASTINE HYDROCHLORIDE
     Dosage: UNK
     Route: 065
  3. DICLOFENAC SODIUM. [Concomitant]
     Active Substance: DICLOFENAC SODIUM
     Dosage: UNK
     Route: 065
  4. LMX4 [Concomitant]
     Active Substance: LIDOCAINE
     Dosage: UNK
     Route: 065
  5. ATORVASTATIN [Concomitant]
     Active Substance: ATORVASTATIN
     Dosage: UNK
     Route: 065
  6. PROVENTIL [Concomitant]
     Active Substance: ALBUTEROL
     Dosage: UNK
     Route: 065
  7. BREO ELLIPTA [Concomitant]
     Active Substance: FLUTICASONE FUROATE\VILANTEROL TRIFENATATE
     Dosage: UNK
     Route: 065
  8. LISINOPRIL AND HYDROCHLOROTHIAZIDE [Concomitant]
     Active Substance: HYDROCHLOROTHIAZIDE\LISINOPRIL
     Dosage: UNK
     Route: 065
  9. NORTRIPTYLINE [Concomitant]
     Active Substance: NORTRIPTYLINE
     Dosage: UNK
     Route: 065
  10. FLUTICASONE. [Concomitant]
     Active Substance: FLUTICASONE
     Dosage: UNK
     Route: 065
  11. DIPHENHYDRAMINE. [Concomitant]
     Active Substance: DIPHENHYDRAMINE
     Dosage: UNK
     Route: 065
  12. GABAPENTIN. [Concomitant]
     Active Substance: GABAPENTIN
     Dosage: UNK
     Route: 065
  13. MUPIROCIN. [Concomitant]
     Active Substance: MUPIROCIN
     Dosage: UNK
     Route: 065
  14. SODIUM CHLORIDE. [Concomitant]
     Active Substance: SODIUM CHLORIDE
     Dosage: UNK
     Route: 065
  15. EPINEPHRINE. [Concomitant]
     Active Substance: EPINEPHRINE
     Dosage: UNK
     Route: 065

REACTIONS (3)
  - Incorrect dose administered [Unknown]
  - Sinusitis [Unknown]
  - Inappropriate schedule of product administration [Unknown]

NARRATIVE: CASE EVENT DATE: 20150720
